FAERS Safety Report 12987256 (Version 2)
Quarter: 2016Q4

REPORT INFORMATION
  Report Type: Spontaneous
  Country: US (occurrence: US)
  Receive Date: 20161130
  Receipt Date: 20161212
  Transmission Date: 20170207
  Serious: No
  Sender: FDA-Public Use
  Company Number: US-ELI_LILLY_AND_COMPANY-US201608001860

PATIENT
  Sex: Female

DRUGS (1)
  1. CYMBALTA [Suspect]
     Active Substance: DULOXETINE HYDROCHLORIDE
     Indication: PRODUCT USED FOR UNKNOWN INDICATION
     Dosage: 60 MG, UNKNOWN
     Route: 065
     Dates: start: 20120910, end: 201502

REACTIONS (12)
  - Affect lability [Unknown]
  - Agitation [Unknown]
  - Fatigue [Unknown]
  - Dysphoria [Unknown]
  - Headache [Unknown]
  - Insomnia [Unknown]
  - Paraesthesia [Unknown]
  - Nausea [Unknown]
  - Irritability [Unknown]
  - Anxiety [Unknown]
  - Tremor [Unknown]
  - Drug withdrawal syndrome [Unknown]
